FAERS Safety Report 6676796-5 (Version None)
Quarter: 2010Q2

REPORT INFORMATION
  Report Type: 
  Country: None (occurrence: None)
  Receive Date: 20100412
  Receipt Date: 20100323
  Transmission Date: 20101027
  Serious: Yes (Other)
  Sender: FDA-Public Use
  Company Number: DE-ROCHE-695605

PATIENT
  Age: 21 Week
  Sex: Female
  Weight: 1 kg

DRUGS (3)
  1. HERCEPTIN [Suspect]
     Route: 064
  2. HERCEPTIN [Suspect]
     Route: 064
  3. NAVELBINE [Concomitant]

REACTIONS (9)
  - CAESAREAN SECTION [None]
  - CAPILLARY LEAK SYNDROME [None]
  - INFECTION [None]
  - MATERNAL DRUGS AFFECTING FOETUS [None]
  - MULTI-ORGAN FAILURE [None]
  - NECROTISING COLITIS [None]
  - NEONATAL RESPIRATORY FAILURE [None]
  - OLIGOHYDRAMNIOS [None]
  - RESPIRATORY FAILURE [None]
